FAERS Safety Report 13144383 (Version 1)
Quarter: 2017Q1

REPORT INFORMATION
  Report Type: Spontaneous
  Country: GB (occurrence: GB)
  Receive Date: 20170124
  Receipt Date: 20170124
  Transmission Date: 20170428
  Serious: Yes (Hospitalization, Other)
  Sender: FDA-Public Use
  Company Number: GB-MACLEODS PHARMACEUTICALS US LTD-MAC2017004237

PATIENT

DRUGS (1)
  1. CLOPIDOGREL [Suspect]
     Active Substance: CLOPIDOGREL BISULFATE
     Indication: CEREBROVASCULAR ACCIDENT PROPHYLAXIS
     Dosage: UNK
     Route: 065

REACTIONS (13)
  - Retroperitoneal haematoma [Recovered/Resolved]
  - Pyrexia [Recovered/Resolved]
  - Rectal perforation [Recovered/Resolved]
  - Sepsis [Recovered/Resolved]
  - Abdominal pain [Recovered/Resolved]
  - Intestinal ischaemia [Recovered/Resolved]
  - C-reactive protein increased [Recovered/Resolved]
  - Tachycardia [Recovered/Resolved]
  - Haemoglobin decreased [Recovered/Resolved]
  - Gastrointestinal necrosis [Recovered/Resolved]
  - Pain in extremity [Recovered/Resolved]
  - Peritonitis [Recovered/Resolved]
  - Hypotension [Recovered/Resolved]
